FAERS Safety Report 17442223 (Version 1)
Quarter: 2020Q1

REPORT INFORMATION
  Report Type: Spontaneous
  Country: US (occurrence: US)
  Receive Date: 20200220
  Receipt Date: 20200220
  Transmission Date: 20200409
  Serious: Yes (Hospitalization, Other)
  Sender: FDA-Public Use
  Company Number: US-TASMAN PHARMA, INC.-2020TSM00033

PATIENT
  Age: 18 Year
  Sex: Male
  Weight: 58.05 kg

DRUGS (9)
  1. CLOZAPINE. [Suspect]
     Active Substance: CLOZAPINE
     Indication: PSYCHOTIC DISORDER
     Dosage: 50 MG, 1X/DAY IN THE MORNING
     Route: 048
     Dates: start: 20191108, end: 2019
  2. CLOZAPINE. [Suspect]
     Active Substance: CLOZAPINE
     Dosage: 250 MG, 1X/DAY AT BEDTIME
     Route: 048
     Dates: start: 2019
  3. CLOZAPINE. [Suspect]
     Active Substance: CLOZAPINE
     Dosage: 50 MG, 1X/DAY IN THE MORNING
     Route: 048
     Dates: start: 201912
  4. LITHIUM. [Suspect]
     Active Substance: LITHIUM
     Indication: AFFECTIVE DISORDER
     Dosage: UNK
     Dates: start: 2019
  5. CLOZAPINE. [Suspect]
     Active Substance: CLOZAPINE
     Indication: SCHIZOAFFECTIVE DISORDER BIPOLAR TYPE
     Dosage: 275 MG, 1X/DAY AT BEDTIME
     Route: 048
     Dates: start: 20191108, end: 2019
  6. CLOZAPINE. [Suspect]
     Active Substance: CLOZAPINE
     Dosage: 75 MG, 1X/DAY IN THE MORNING
     Route: 048
     Dates: start: 2019, end: 20191210
  7. CLOZAPINE. [Suspect]
     Active Substance: CLOZAPINE
     Dosage: 25 MG, 1X/DAY IN THE MORNING
     Route: 048
     Dates: start: 20191212
  8. LITHIUM. [Suspect]
     Active Substance: LITHIUM
     Dosage: UNK (DECREASED DOSE)
     Dates: start: 20191210
  9. LORAZEPAM. [Concomitant]
     Active Substance: LORAZEPAM
     Indication: CATATONIA
     Dosage: UNK
     Dates: start: 20191106

REACTIONS (11)
  - Attention deficit/hyperactivity disorder [Unknown]
  - Seizure [Recovered/Resolved]
  - Drug ineffective [Not Recovered/Not Resolved]
  - Drug dependence [Unknown]
  - Benign ethnic neutropenia [Recovered/Resolved]
  - Heart rate increased [Unknown]
  - Underweight [Not Recovered/Not Resolved]
  - Dysarthria [Unknown]
  - Schizoaffective disorder bipolar type [Unknown]
  - Malnutrition [Unknown]
  - Hypertension [Unknown]

NARRATIVE: CASE EVENT DATE: 20191108
